FAERS Safety Report 10215588 (Version 1)
Quarter: 2014Q2

REPORT INFORMATION
  Report Type: Spontaneous
  Country: US (occurrence: US)
  Receive Date: 20140604
  Receipt Date: 20140604
  Transmission Date: 20141212
  Serious: Yes (Life-Threatening, Hospitalization, Other)
  Sender: FDA-Public Use
  Company Number: US-ORION CORPORATION ORION PHARMA-SPIR2014-0003

PATIENT
  Age: 53 Year
  Sex: Female

DRUGS (9)
  1. SPIRONOLACTONE [Suspect]
     Route: 065
  2. LISINOPRIL [Suspect]
     Route: 065
  3. POTASSIUM CHLORIDE [Suspect]
     Route: 065
  4. SIMVASTATIN [Concomitant]
     Route: 065
  5. DIGOXIN [Concomitant]
     Route: 065
  6. FUROSEMIDE [Concomitant]
     Route: 065
  7. CARVEDILOL [Concomitant]
     Route: 065
  8. INSULIN [Concomitant]
     Dosage: 70/30 (40 UNITS EVERY AM, 25 UNITS EVERY PM)
     Route: 065
  9. FERROUS SULFATE [Concomitant]
     Route: 065

REACTIONS (5)
  - Paralysis [Recovered/Resolved]
  - Hyperkalaemia [Recovered/Resolved]
  - Atrioventricular block first degree [Recovered/Resolved]
  - Fall [Unknown]
  - Renal failure acute [Unknown]
